FAERS Safety Report 16677407 (Version 1)
Quarter: 2019Q3

REPORT INFORMATION
  Report Type: Spontaneous
  Country: FI (occurrence: FI)
  Receive Date: 20190807
  Receipt Date: 20190807
  Transmission Date: 20191004
  Serious: Yes (Other)
  Sender: FDA-Public Use
  Company Number: FI-PFIZER INC-2019199664

PATIENT
  Age: 50 Year
  Sex: Female

DRUGS (1)
  1. EFEXOR DEPOT [Suspect]
     Active Substance: VENLAFAXINE HYDROCHLORIDE
     Indication: DEPRESSION
     Dosage: 150 MG, DAILY
     Dates: start: 201803, end: 201809

REACTIONS (13)
  - Abnormal behaviour [Recovered/Resolved]
  - Paranoia [Recovered/Resolved]
  - Mania [Recovered/Resolved]
  - Brain injury [Recovered/Resolved]
  - Withdrawal syndrome [Recovered/Resolved]
  - Intentional product use issue [Recovered/Resolved]
  - Physical assault [Recovered/Resolved]
  - Legal problem [Unknown]
  - Fatigue [Recovered/Resolved]
  - Impulsive behaviour [Recovered/Resolved]
  - Personality change [Recovered/Resolved]
  - Aggression [Recovered/Resolved]
  - Nausea [Recovered/Resolved]

NARRATIVE: CASE EVENT DATE: 201809
